FAERS Safety Report 4728763-6 (Version None)
Quarter: 2005Q3

REPORT INFORMATION
  Report Type: 
  Country: None (occurrence: None)
  Receive Date: 20050729
  Receipt Date: 20050721
  Transmission Date: 20060218
  Serious: Yes (Other)
  Sender: FDA-Public Use
  Company Number: 13036512

PATIENT
  Age: 33 Year

DRUGS (5)
  1. LAMIVUDINE [Suspect]
     Indication: HIV INFECTION
     Route: 048
     Dates: start: 20050524
  2. EFAVIRENZ [Suspect]
     Indication: HIV INFECTION
     Route: 048
     Dates: start: 20050524
  3. STAVUDINE [Suspect]
     Indication: HIV INFECTION
     Dates: start: 20050524
  4. ANTI-TUBERCULOSIS MEDICATION [Concomitant]
     Dates: end: 20050309
  5. UNSPECIFIED MEDICATION [Concomitant]

REACTIONS (1)
  - HEPATOTOXICITY [None]
